FAERS Safety Report 4516055-X (Version None)
Quarter: 2004Q4

REPORT INFORMATION
  Report Type: 
  Country: None (occurrence: None)
  Receive Date: 20041129
  Receipt Date: 20041117
  Transmission Date: 20050328
  Serious: Yes (Hospitalization)
  Sender: FDA-Public Use
  Company Number: 2004096103

PATIENT
  Age: 13 Year
  Sex: Female

DRUGS (1)
  1. SOMATROPIN POWDER, STERILE (SOMATROPIN) [Suspect]
     Indication: SMALL FOR DATES BABY
     Dosage: (1.4 MG, DAILY INTERVAL: EVERYDAY), SUBCUTANEOUS
     Route: 058
     Dates: start: 20030409

REACTIONS (4)
  - ADENOIDAL HYPERTROPHY [None]
  - EAR INFECTION [None]
  - NASAL CONGESTION [None]
  - RHINITIS [None]
